FAERS Safety Report 14746487 (Version 1)
Quarter: 2018Q2

REPORT INFORMATION
  Report Type: Report from Study
  Country: US (occurrence: US)
  Receive Date: 20180411
  Receipt Date: 20180411
  Transmission Date: 20180711
  Serious: Yes (Hospitalization, Other)
  Sender: FDA-Public Use
  Company Number: US-GILEAD-2018-0331609

PATIENT
  Age: 69 Year
  Sex: Female

DRUGS (2)
  1. BUMEX [Concomitant]
     Active Substance: BUMETANIDE
     Route: 065
  2. RANOLAZINE. [Suspect]
     Active Substance: RANOLAZINE
     Indication: ANGINA PECTORIS
     Dosage: 500 MG, BID
     Route: 048
     Dates: start: 201703

REACTIONS (16)
  - Rib fracture [Recovered/Resolved]
  - Dyspnoea [Not Recovered/Not Resolved]
  - Weight decreased [Unknown]
  - Nephrolithiasis [Unknown]
  - Haemoglobin decreased [Unknown]
  - Intentional product use issue [Unknown]
  - Renal atrophy [Unknown]
  - Myocardial infarction [Unknown]
  - Pulmonary hypertension [Not Recovered/Not Resolved]
  - Diastolic dysfunction [Not Recovered/Not Resolved]
  - Blindness [Not Recovered/Not Resolved]
  - Pleural effusion [Unknown]
  - Constipation [Unknown]
  - Macular degeneration [Not Recovered/Not Resolved]
  - Urinary tract infection [Unknown]
  - Product use issue [Unknown]

NARRATIVE: CASE EVENT DATE: 2017
